FAERS Safety Report 11648279 (Version 2)
Quarter: 2015Q4

REPORT INFORMATION
  Report Type: Spontaneous
  Country: US (occurrence: US)
  Receive Date: 20151021
  Receipt Date: 20151027
  Transmission Date: 20160304
  Serious: No
  Sender: FDA-Public Use
  Company Number: US-PFIZER INC-2015349839

PATIENT
  Age: 62 Year
  Sex: Female
  Weight: 54 kg

DRUGS (2)
  1. GABAPENTIN. [Suspect]
     Active Substance: GABAPENTIN
     Indication: FIBROMYALGIA
     Dosage: 300 MG, 2X/DAY
     Route: 048
     Dates: start: 20150807, end: 201509
  2. GABAPENTIN. [Suspect]
     Active Substance: GABAPENTIN
     Dosage: 300 MG, DAILY
     Route: 048
     Dates: start: 201509, end: 20151014

REACTIONS (21)
  - Insomnia [Not Recovered/Not Resolved]
  - Speech disorder [Recovering/Resolving]
  - Asthenia [Not Recovered/Not Resolved]
  - Skin lesion [Unknown]
  - Incorrect dose administered [Unknown]
  - Diarrhoea [Recovering/Resolving]
  - Hyperacusis [Recovering/Resolving]
  - Drug dispensing error [Unknown]
  - Gait disturbance [Not Recovered/Not Resolved]
  - Eating disorder [Not Recovered/Not Resolved]
  - Fall [Recovered/Resolved]
  - Malaise [Unknown]
  - Drug ineffective for unapproved indication [Not Recovered/Not Resolved]
  - Fibromyalgia [Recovering/Resolving]
  - Feeling abnormal [Not Recovered/Not Resolved]
  - Drug prescribing error [Unknown]
  - Condition aggravated [Recovering/Resolving]
  - Neuralgia [Recovering/Resolving]
  - Nausea [Not Recovered/Not Resolved]
  - Contusion [Unknown]
  - Condition aggravated [Unknown]

NARRATIVE: CASE EVENT DATE: 201509
